FAERS Safety Report 17898224 (Version 1)
Quarter: 2020Q2

REPORT INFORMATION
  Report Type: Other
  Country: CH (occurrence: CH)
  Receive Date: 20200616
  Receipt Date: 20200616
  Transmission Date: 20200714
  Serious: Yes (Congenital Anomaly)
  Sender: FDA-Public Use
  Company Number: CH-NUVO PHARMACEUTICALS INC-2085888

PATIENT

DRUGS (4)
  1. TIZANIDINE. [Suspect]
     Active Substance: TIZANIDINE
     Route: 064
  2. FLUFENAMIC ACID [Suspect]
     Active Substance: FLUFENAMIC ACID
     Route: 064
  3. PHENTERMINE HYDROCHLORIDE. [Suspect]
     Active Substance: PHENTERMINE HYDROCHLORIDE
     Indication: FOETAL EXPOSURE DURING PREGNANCY
     Route: 064
  4. DICLOFENAC [Suspect]
     Active Substance: DICLOFENAC
     Route: 064

REACTIONS (1)
  - Hypospadias [Unknown]
